FAERS Safety Report 6512113-9 (Version None)
Quarter: 2009Q4

REPORT INFORMATION
  Report Type: 
  Country: None (occurrence: None)
  Receive Date: 20091222
  Receipt Date: 20090717
  Transmission Date: 20100525
  Serious: No
  Sender: FDA-Public Use
  Company Number: US-ASTRAZENECA-2009UW14207

PATIENT
  Age: 64 Year
  Sex: Male
  Weight: 79.4 kg

DRUGS (6)
  1. CRESTOR [Suspect]
     Route: 048
     Dates: start: 20090601
  2. PLAVIX [Concomitant]
  3. ASPIRIN [Concomitant]
  4. ZEBETA [Concomitant]
  5. NIACIN [Concomitant]
  6. ZANTAC [Concomitant]

REACTIONS (1)
  - DYSPEPSIA [None]
